FAERS Safety Report 5647384-4 (Version None)
Quarter: 2008Q1

REPORT INFORMATION
  Report Type: 
  Country: None (occurrence: None)
  Receive Date: 20080228
  Receipt Date: 20080215
  Transmission Date: 20080703
  Serious: Yes (Hospitalization)
  Sender: FDA-Public Use
  Company Number: 2007S1009932

PATIENT
  Age: 79 Year
  Sex: Female
  Weight: 53.5244 kg

DRUGS (8)
  1. ACETUBOLOL HCL CAPSULES, USP (200 MG) [Suspect]
     Indication: ATRIAL FIBRILLATION
     Dosage: 200 MG; DAILY; ORAL
     Route: 048
     Dates: start: 20070501, end: 20070801
  2. ACEBUTOLOL [Suspect]
     Indication: ATRIAL FIBRILLATION
     Dosage: 200 MG; DAILY; ORAL
     Route: 048
     Dates: start: 19970101
  3. MIRAPEX [Concomitant]
  4. COUMADIN [Concomitant]
  5. ASPIRIN [Concomitant]
  6. PREMARIN [Concomitant]
  7. XANAX [Concomitant]
  8. ATACAND [Concomitant]

REACTIONS (15)
  - ANXIETY [None]
  - ASTHENIA [None]
  - CHEST PAIN [None]
  - DEPRESSION [None]
  - DYSPNOEA [None]
  - FATIGUE [None]
  - GAIT DISTURBANCE [None]
  - HEADACHE [None]
  - HYPERTENSION [None]
  - HYPOTENSION [None]
  - IMPAIRED WORK ABILITY [None]
  - INSOMNIA [None]
  - MALAISE [None]
  - NAUSEA [None]
  - PHARMACEUTICAL PRODUCT COMPLAINT [None]
